FAERS Safety Report 5504794-3 (Version None)
Quarter: 2007Q4

REPORT INFORMATION
  Report Type: 
  Country: None (occurrence: None)
  Receive Date: 20071031
  Receipt Date: 20071031
  Transmission Date: 20080405
  Serious: Yes (Life-Threatening, Hospitalization)
  Sender: FDA-Public Use
  Company Number: None

PATIENT
  Age: 47 Year
  Sex: Male

DRUGS (1)
  1. OLANZAPINE [Suspect]
     Indication: SCHIZOPHRENIA
     Dosage: 40MG HS PO
     Route: 048
     Dates: start: 20070917, end: 20071010

REACTIONS (8)
  - CONFUSIONAL STATE [None]
  - DIABETIC KETOACIDOSIS [None]
  - DRUG TOXICITY [None]
  - HYPERGLYCAEMIA [None]
  - MENTAL STATUS CHANGES [None]
  - PANCREATITIS [None]
  - SEDATION [None]
  - SOMNOLENCE [None]
